FAERS Safety Report 20592169 (Version 1)
Quarter: 2022Q1

REPORT INFORMATION
  Report Type: Spontaneous
  Country: US (occurrence: None)
  Receive Date: 20220314
  Receipt Date: 20220314
  Transmission Date: 20220423
  Serious: No
  Sender: FDA-Public Use
  Company Number: US-ROCHE-2752353

PATIENT
  Age: 19 Year
  Sex: Male
  Weight: 76.272 kg

DRUGS (7)
  1. XOLAIR [Suspect]
     Active Substance: OMALIZUMAB
     Indication: Urticaria chronic
     Dosage: TWO 150 MG SHOTS PER DOSE ;ONGOING: YES
     Route: 058
     Dates: start: 201912
  2. ZYRTEC (UNITED STATES) [Concomitant]
     Indication: Urticaria chronic
     Dosage: ONE TABLET EVERY 12 HOURS AS NEEDED ;ONGOING: YES
     Route: 048
     Dates: start: 2018
  3. ZYRTEC (UNITED STATES) [Concomitant]
     Indication: Seasonal allergy
  4. SINGULAIR [Concomitant]
     Active Substance: MONTELUKAST SODIUM
     Indication: Urticaria chronic
     Dosage: ONE TABLET AS NEEDED ;ONGOING: YES
     Route: 048
     Dates: start: 2018
  5. SINGULAIR [Concomitant]
     Active Substance: MONTELUKAST SODIUM
     Indication: Seasonal allergy
  6. ALBUTEROL SULFATE [Concomitant]
     Active Substance: ALBUTEROL SULFATE
     Indication: Asthma
     Dosage: RESPIRATORY (INHALATION) RESCUE INHALER AS NEEDED ;ONGOING: YES
  7. EPIPEN [Concomitant]
     Active Substance: EPINEPHRINE
     Indication: Anaphylactic shock
     Dosage: AS NEEDED ;ONGOING: YES
     Dates: start: 2018

REACTIONS (3)
  - Urticaria [Recovered/Resolved]
  - SARS-CoV-2 antibody test positive [Not Recovered/Not Resolved]
  - Nasal congestion [Not Recovered/Not Resolved]

NARRATIVE: CASE EVENT DATE: 20191201
